FAERS Safety Report 6050381-0 (Version None)
Quarter: 2009Q1

REPORT INFORMATION
  Report Type: 
  Country: None (occurrence: None)
  Receive Date: 20090116
  Receipt Date: 20090112
  Transmission Date: 20090719
  Serious: Yes (Hospitalization)
  Sender: FDA-Public Use
  Company Number: 2009-GWUS-0014

PATIENT
  Age: 81 Year
  Sex: Male

DRUGS (4)
  1. ALDARA [Suspect]
     Indication: MALIGNANT MELANOMA
     Dosage: APPLICATION - 2XW - TOPICAL
     Route: 061
  2. UNKNOWN HEART MEDICATION [Concomitant]
  3. METOPROLOL TARTRATE (LOPRESSOR) [Concomitant]
  4. UNKNOWN BLOOD THINNER [Concomitant]

REACTIONS (3)
  - BRAIN OEDEMA [None]
  - CEREBRAL HAEMORRHAGE [None]
  - CEREBROVASCULAR ACCIDENT [None]
